FAERS Safety Report 15326331 (Version 5)
Quarter: 2018Q4

REPORT INFORMATION
  Report Type: Spontaneous
  Country: US (occurrence: US)
  Receive Date: 20180828
  Receipt Date: 20181016
  Transmission Date: 20190204
  Serious: No
  Sender: FDA-Public Use
  Company Number: US-SA-2018SA238936

PATIENT
  Age: 60 Year
  Sex: Female
  Weight: 82.5 kg

DRUGS (9)
  1. MINOCYCLINE [Concomitant]
     Active Substance: MINOCYCLINE\MINOCYCLINE HYDROCHLORIDE
  2. KEVZARA [Suspect]
     Active Substance: SARILUMAB
     Dosage: 200 MG, QOW
     Route: 058
     Dates: start: 20180119, end: 20180812
  3. SEPTRA [Concomitant]
     Active Substance: SULFAMETHOXAZOLE\TRIMETHOPRIM
  4. LEVOFLOXACIN. [Concomitant]
     Active Substance: LEVOFLOXACIN
  5. KEVZARA [Suspect]
     Active Substance: SARILUMAB
     Indication: RHEUMATOID ARTHRITIS
     Dosage: UNK
     Dates: start: 2017, end: 20180812
  6. CLONIDINE. [Concomitant]
     Active Substance: CLONIDINE
  7. MAXALT [Concomitant]
     Active Substance: RIZATRIPTAN BENZOATE
  8. DEPAKOTE [Concomitant]
     Active Substance: DIVALPROEX SODIUM
  9. SULINDAC. [Concomitant]
     Active Substance: SULINDAC

REACTIONS (2)
  - Injection site pruritus [Recovered/Resolved]
  - Injection site urticaria [Recovered/Resolved]

NARRATIVE: CASE EVENT DATE: 20180813
